FAERS Safety Report 8519133 (Version 3)
Quarter: 2012Q4

REPORT INFORMATION
  Report Type: 
  Country: RU (occurrence: RU)
  Receive Date: 20120418
  Receipt Date: 20121004
  Transmission Date: 20130627
  Serious: Yes (Hospitalization)
  Sender: FDA-Public Use
  Company Number: PHHO2012RU004946

PATIENT
  Age: 68 Year
  Sex: Male
  Weight: 64 kg

DRUGS (6)
  1. UNSPECIFIED INGREDIENT [Suspect]
     Indication: NON-HODGKIN^S LYMPHOMA
     Dosage: Code not broken
     Route: 042
     Dates: start: 20120131
  2. MABTHERA [Suspect]
     Indication: NON-HODGKIN^S LYMPHOMA
     Dosage: Code not broken
     Route: 042
     Dates: start: 20120131
  3. BLINDED NO TREATMENT RECEIVED [Suspect]
     Indication: NON-HODGKIN^S LYMPHOMA
     Dosage: Code not broken
     Route: 042
     Dates: start: 20120131
  4. VINCRISTINE [Suspect]
     Indication: NON-HODGKIN^S LYMPHOMA
     Dosage: 2 mg, QD
     Route: 042
     Dates: start: 20120131
  5. CYCLOPHOSPHAMIDE [Suspect]
     Indication: NON-HODGKIN^S LYMPHOMA
     Dosage: 995.6 mg, QD
     Route: 042
     Dates: start: 20120131
  6. PREDNISOLONE [Suspect]
     Indication: NON-HODGKIN^S LYMPHOMA
     Dosage: 100 mg/d
     Route: 048
     Dates: start: 20120131

REACTIONS (2)
  - Febrile neutropenia [Recovered/Resolved]
  - Peritonitis [Recovered/Resolved with Sequelae]
